FAERS Safety Report 25672824 (Version 1)
Quarter: 2025Q3

REPORT INFORMATION
  Report Type: Spontaneous
  Country: US (occurrence: US)
  Receive Date: 20250812
  Receipt Date: 20250812
  Transmission Date: 20251020
  Serious: No
  Sender: ANI
  Company Number: US-ANIPHARMA-2025-US-003922

PATIENT
  Age: 40 Year
  Sex: Male
  Weight: 56.7 kg

DRUGS (1)
  1. CORTICOTROPIN [Suspect]
     Active Substance: CORTICOTROPIN
     Indication: Keratitis
     Route: 030
     Dates: start: 20250104

REACTIONS (6)
  - Chest pain [Recovered/Resolved]
  - Ocular hyperaemia [Recovered/Resolved]
  - Impaired healing [Unknown]
  - Blood pressure increased [Recovered/Resolved]
  - Incorrect dosage administered [Recovered/Resolved]
  - Product dose omission issue [Unknown]

NARRATIVE: CASE EVENT DATE: 20250104
